FAERS Safety Report 6541909-2 (Version None)
Quarter: 2010Q1

REPORT INFORMATION
  Report Type: 
  Country: None (occurrence: None)
  Receive Date: 20100119
  Receipt Date: 20100111
  Transmission Date: 20100710
  Serious: No
  Sender: FDA-Public Use
  Company Number: DE-ASTRAZENECA-2009SE33834

PATIENT
  Age: 16 Year
  Sex: Female
  Weight: 73 kg

DRUGS (3)
  1. SEROQUEL XR [Suspect]
     Indication: SCHIZOPHRENIA
     Route: 048
     Dates: start: 20090901, end: 20091115
  2. SEROQUEL XR [Suspect]
     Dosage: 200 MG OR 250 MG TWICE DAY (DOSAGE AS REQUIRED)
     Route: 048
     Dates: start: 20091116, end: 20091217
  3. SEROQUEL XR [Suspect]
     Route: 048
     Dates: start: 20091218

REACTIONS (1)
  - LEUKOPENIA [None]
